FAERS Safety Report 17566793 (Version 2)
Quarter: 2020Q2

REPORT INFORMATION
  Report Type: Report from Study
  Country: None (occurrence: AU)
  Receive Date: 20200320
  Receipt Date: 20200416
  Transmission Date: 20200713
  Serious: No
  Sender: FDA-Public Use
  Company Number: AU-ABBVIE-20K-008-3323935-00

PATIENT
  Sex: Female

DRUGS (1)
  1. HUMIRA [Suspect]
     Active Substance: ADALIMUMAB
     Indication: HIDRADENITIS
     Route: 058
     Dates: start: 20200120

REACTIONS (11)
  - Axillary mass [Not Recovered/Not Resolved]
  - Vomiting [Recovered/Resolved]
  - Breast mass [Not Recovered/Not Resolved]
  - Insomnia [Unknown]
  - Haematochezia [Unknown]
  - Nausea [Recovering/Resolving]
  - Injection site bruising [Unknown]
  - Feeling abnormal [Not Recovered/Not Resolved]
  - Skin mass [Not Recovered/Not Resolved]
  - Drug ineffective [Not Recovered/Not Resolved]
  - Anxiety [Not Recovered/Not Resolved]

NARRATIVE: CASE EVENT DATE: 2020
